FAERS Safety Report 9831523 (Version 1)
Quarter: 2014Q1

REPORT INFORMATION
  Report Type: Spontaneous
  Country: US (occurrence: US)
  Receive Date: 20140121
  Receipt Date: 20140121
  Transmission Date: 20141002
  Serious: Yes (Disabling, Other)
  Sender: FDA-Public Use
  Company Number: US-ASTRAZENECA-2014SE03000

PATIENT
  Age: 58 Year
  Sex: Female
  Weight: 80.7 kg

DRUGS (9)
  1. ARIMIDEX [Suspect]
     Indication: BREAST CANCER FEMALE
     Route: 048
     Dates: start: 20131022, end: 20131025
  2. ARIMIDEX [Suspect]
     Indication: BREAST CANCER FEMALE
     Route: 048
     Dates: start: 20131104, end: 20131212
  3. LISINOPRIL HCT [Suspect]
     Indication: BLOOD PRESSURE ABNORMAL
     Dosage: 20/12.5 MG DAILY
     Route: 048
     Dates: start: 2005
  4. SYNTHROID [Concomitant]
     Indication: THYROID DISORDER
     Route: 048
     Dates: start: 2004
  5. METFORMIN [Concomitant]
     Indication: DIABETES MELLITUS
     Route: 048
     Dates: start: 2006
  6. ATORVASTATIN [Concomitant]
     Indication: BLOOD CHOLESTEROL ABNORMAL
     Route: 048
     Dates: start: 201201
  7. FENOFIBRATE [Concomitant]
     Indication: BLOOD CHOLESTEROL ABNORMAL
     Route: 048
     Dates: start: 201201
  8. OXYCONTIN [Concomitant]
     Indication: ARTHRALGIA
     Dates: start: 20140109
  9. OSTEOBIFLEX [Concomitant]
     Indication: PAIN
     Dosage: BID
     Dates: start: 20140110

REACTIONS (10)
  - Gait disturbance [Unknown]
  - Malaise [Recovered/Resolved]
  - Musculoskeletal pain [Recovering/Resolving]
  - Neck pain [Recovering/Resolving]
  - Mental disorder [Unknown]
  - Viral infection [Unknown]
  - Nausea [Recovered/Resolved]
  - Arthralgia [Recovering/Resolving]
  - Arthralgia [Not Recovered/Not Resolved]
  - Osteoarthritis [Not Recovered/Not Resolved]
